FAERS Safety Report 4446433-9 (Version None)
Quarter: 2004Q3

REPORT INFORMATION
  Report Type: 
  Country: None (occurrence: None)
  Receive Date: 20040908
  Receipt Date: 20040824
  Transmission Date: 20050211
  Serious: Yes (Death)
  Sender: FDA-Public Use
  Company Number: 04P-163-0271376-00

PATIENT
  Sex: Male

DRUGS (2)
  1. DEPAKOTE [Suspect]
     Indication: ABNORMAL BEHAVIOUR
     Dosage: PER ORAL
     Route: 048
  2. DEPAKOTE [Suspect]
     Indication: CONVULSION
     Dosage: PER ORAL
     Route: 048

REACTIONS (1)
  - HYPERAMMONAEMIA [None]
